FAERS Safety Report 6071811-4 (Version None)
Quarter: 2009Q1

REPORT INFORMATION
  Report Type: 
  Country: None (occurrence: None)
  Receive Date: 20090210
  Receipt Date: 20090128
  Transmission Date: 20090719
  Serious: Yes (Other)
  Sender: FDA-Public Use
  Company Number: PHHY2009JP03332

PATIENT
  Age: 82 Year
  Sex: Female

DRUGS (7)
  1. DIOVAN [Suspect]
     Indication: HYPERTENSION
     Dosage: 160 MG, QD
     Route: 048
     Dates: start: 20081213, end: 20090128
  2. NORVASC [Concomitant]
     Dosage: 5 MG
     Route: 048
  3. HYDROCHLOROTHIAZIDE [Concomitant]
     Route: 048
  4. FESIN [Concomitant]
  5. RIZE [Concomitant]
  6. URSO 250 [Concomitant]
  7. ACECOL [Concomitant]

REACTIONS (2)
  - HYPOCHROMIC ANAEMIA [None]
  - PANCYTOPENIA [None]
